FAERS Safety Report 18733234 (Version 2)
Quarter: 2021Q2

REPORT INFORMATION
  Report Type: Spontaneous
  Country: US (occurrence: US)
  Receive Date: 20210113
  Receipt Date: 20210518
  Transmission Date: 20210717
  Serious: Yes (Life-Threatening, Hospitalization, Other)
  Sender: FDA-Public Use
  Company Number: US-DRREDDYS-USA/USA/21/0130825

PATIENT
  Age: 65 Year
  Sex: Female

DRUGS (2)
  1. GEMCITABINE. [Suspect]
     Active Substance: GEMCITABINE
     Indication: BREAST CANCER METASTATIC
  2. GEMCITABINE. [Suspect]
     Active Substance: GEMCITABINE
     Indication: INVASIVE DUCTAL BREAST CARCINOMA
     Dosage: 1250 MG/M2/WEEK OF GEMCITABINE FOR 3 WEEKS/MONTH FOR THE PRECEDING 1 YEAR,

REACTIONS (3)
  - Renal impairment [Recovering/Resolving]
  - Hypertension [Recovered/Resolved]
  - Thrombotic microangiopathy [Recovering/Resolving]
